FAERS Safety Report 18497676 (Version 2)
Quarter: 2020Q4

REPORT INFORMATION
  Report Type: Spontaneous
  Country: US (occurrence: US)
  Receive Date: 20201112
  Receipt Date: 20201119
  Transmission Date: 20210114
  Serious: No
  Sender: FDA-Public Use
  Company Number: US-PFIZER INC-2020427257

PATIENT
  Age: 45 Year
  Sex: Female

DRUGS (1)
  1. FENTANYL CITRATE. [Suspect]
     Active Substance: FENTANYL CITRATE
     Dosage: UNK (2500 UG/50ML STRENGTH SOLUTION FOR INJECTION IN FLIP TOP VIAL)
     Dates: start: 20201031

REACTIONS (5)
  - Exposure via skin contact [Recovered/Resolved]
  - Expired product administered [Unknown]
  - Hypoaesthesia [Recovered/Resolved]
  - Accidental exposure to product [Recovered/Resolved]
  - Product container seal issue [Recovered/Resolved]

NARRATIVE: CASE EVENT DATE: 2020
